FAERS Safety Report 5895866-2 (Version None)
Quarter: 2008Q3

REPORT INFORMATION
  Report Type: 
  Country: None (occurrence: None)
  Receive Date: 20080822
  Receipt Date: 20070905
  Transmission Date: 20090109
  Serious: Yes (Death)
  Sender: FDA-Public Use
  Company Number: T200701048

PATIENT
  Sex: Male

DRUGS (2)
  1. METHADOSE [Suspect]
  2. OXYCODONE HCL [Suspect]

REACTIONS (1)
  - DRUG TOXICITY [None]
